FAERS Safety Report 9294023 (Version 1)
Quarter: 2013Q1

REPORT INFORMATION
  Report Type: Spontaneous
  Country: US (occurrence: None)
  Receive Date: 20121226
  Receipt Date: 20121226
  Transmission Date: 20140127
  Serious: Yes (Other)
  Sender: FDA-Public Use
  Company Number: 339924

PATIENT
  Sex: 0

DRUGS (1)
  1. LEVEMIR FLEXPEN [Suspect]
     Indication: DIABETES MELLITUS
     Dosage: AT BEDTIME
     Route: 058
     Dates: start: 2011

REACTIONS (2)
  - Device malfunction [None]
  - No adverse event [None]
